FAERS Safety Report 9535447 (Version 1)
Quarter: 2013Q3

REPORT INFORMATION
  Report Type: Spontaneous
  Country: KR (occurrence: KR)
  Receive Date: 20130918
  Receipt Date: 20130918
  Transmission Date: 20140515
  Serious: Yes (Other)
  Sender: FDA-Public Use
  Company Number: KR-PFIZER INC-2013261911

PATIENT
  Age: 60 Year
  Sex: Male

DRUGS (1)
  1. VIAGRA [Suspect]
     Dosage: 100 MG, WEEKLY
     Route: 048

REACTIONS (5)
  - Hypoacusis [Unknown]
  - Arrhythmia [Unknown]
  - Hepatic steatosis [Unknown]
  - Flushing [Unknown]
  - Abdominal discomfort [Unknown]
